FAERS Safety Report 5023641-X (Version None)
Quarter: 2006Q2

REPORT INFORMATION
  Report Type: 
  Country: None (occurrence: None)
  Receive Date: 20060606
  Receipt Date: 20060523
  Transmission Date: 20061013
  Serious: Yes (Hospitalization)
  Sender: FDA-Public Use
  Company Number: AU-2005-022113

PATIENT
  Age: 22 Year
  Sex: Female

DRUGS (5)
  1. LEUKINE [Suspect]
     Indication: CROHN'S DISEASE
     Dosage: 0.7 MG, 1X/DAY, SUBCUTANEOUS
     Route: 058
     Dates: start: 20051005, end: 20051023
  2. PARACETAMOL [Concomitant]
  3. LEVLEN ED [Concomitant]
  4. GLUCOSAMINE 9GLUCOSAMINE) [Concomitant]
  5. PARACETAMOL [Concomitant]

REACTIONS (5)
  - ABDOMINAL ABSCESS [None]
  - DISEASE PROGRESSION [None]
  - HEPATOSPLENOMEGALY [None]
  - INTESTINAL FISTULA [None]
  - PERITONITIS [None]
